FAERS Safety Report 24917297 (Version 1)
Quarter: 2025Q1

REPORT INFORMATION
  Report Type: Spontaneous
  Country: US (occurrence: None)
  Receive Date: 20250203
  Receipt Date: 20250203
  Transmission Date: 20250408
  Serious: No
  Sender: FDA-CTU
  Company Number: None

PATIENT
  Sex: Male

DRUGS (4)
  1. TRACLEER [Suspect]
     Active Substance: BOSENTAN
     Indication: Pulmonary arterial hypertension
     Dosage: 125MG  2 TIMES A DAY ORAL ?
     Route: 048
     Dates: start: 201708
  2. EPOPROSTENOL [Suspect]
     Active Substance: EPOPROSTENOL
     Indication: Pulmonary arterial hypertension
     Route: 042
  3. SODIUM CHLOR INJ (1000ML/BAG [Concomitant]
  4. EPOPROSTENOL [Concomitant]
     Active Substance: EPOPROSTENOL

REACTIONS (1)
  - Pneumonia [None]

NARRATIVE: CASE EVENT DATE: 10250101
